FAERS Safety Report 7993377-1 (Version None)
Quarter: 2011Q4

REPORT INFORMATION
  Report Type: 
  Country: None (occurrence: None)
  Receive Date: 20111219
  Receipt Date: 20111017
  Transmission Date: 20120403
  Serious: Yes (Hospitalization)
  Sender: FDA-Public Use
  Company Number: US-ASTRAZENECA-2011SE62404

PATIENT
  Age: 67 Year
  Sex: Female

DRUGS (2)
  1. CLONIDINE [Concomitant]
  2. ROSUVASTATIN [Suspect]
     Indication: DYSLIPIDAEMIA
     Route: 048

REACTIONS (1)
  - PANCREATITIS ACUTE [None]
